FAERS Safety Report 17094292 (Version 3)
Quarter: 2019Q4

REPORT INFORMATION
  Report Type: Spontaneous
  Country: DE (occurrence: DE)
  Receive Date: 20191129
  Receipt Date: 20191226
  Transmission Date: 20200122
  Serious: Yes (Other)
  Sender: FDA-Public Use
  Company Number: DE-ARBOR PHARMACEUTICALS, LLC-DE-2019ARB001648

PATIENT
  Age: 72 Year
  Sex: Male

DRUGS (7)
  1. CIPROFLOXACIN\FLUOCINOLONE ACETONIDE [Suspect]
     Active Substance: CIPROFLOXACIN\FLUOCINOLONE ACETONIDE
     Indication: EAR SWELLING
     Dosage: 2 X IN 1 DAY
     Route: 001
     Dates: start: 20190722, end: 20190831
  2. RAMIPRIL. [Concomitant]
     Active Substance: RAMIPRIL
     Indication: PRODUCT USED FOR UNKNOWN INDICATION
     Dosage: 1 DF, QD
     Dates: start: 2002
  3. ASPIRIN. [Concomitant]
     Active Substance: ASPIRIN
     Indication: PRODUCT USED FOR UNKNOWN INDICATION
     Dosage: 1 DF, QD
     Dates: start: 201807
  4. PANTOPRAZOL                        /01263201/ [Concomitant]
     Active Substance: PANTOPRAZOLE
     Indication: PRODUCT USED FOR UNKNOWN INDICATION
     Dosage: 1 DF, QD
     Dates: start: 1990
  5. BISOPROLOL [Concomitant]
     Active Substance: BISOPROLOL
     Indication: PRODUCT USED FOR UNKNOWN INDICATION
     Dosage: 2.5 MG, BID
     Dates: start: 201807
  6. SIMVASTATIN. [Concomitant]
     Active Substance: SIMVASTATIN
     Indication: PRODUCT USED FOR UNKNOWN INDICATION
     Dosage: 1 DF, QD
     Dates: start: 201807
  7. ETORICOXIB AL [Concomitant]
     Indication: PRODUCT USED FOR UNKNOWN INDICATION
     Dosage: 60 MG, UNK
     Dates: start: 20190823

REACTIONS (11)
  - Arthralgia [Recovered/Resolved]
  - Peripheral swelling [Recovering/Resolving]
  - Incorrect product administration duration [Unknown]
  - Peripheral swelling [Recovering/Resolving]
  - Muscular weakness [Not Recovered/Not Resolved]
  - Bone pain [Recovering/Resolving]
  - Paraesthesia [Recovering/Resolving]
  - Sleep disorder due to a general medical condition [Unknown]
  - Skin warm [Unknown]
  - Tendon pain [Recovering/Resolving]
  - Myalgia [Recovering/Resolving]

NARRATIVE: CASE EVENT DATE: 20190804
